FAERS Safety Report 21267060 (Version 1)
Quarter: 2022Q3

REPORT INFORMATION
  Report Type: Report from Study
  Country: US (occurrence: US)
  Receive Date: 20220829
  Receipt Date: 20220829
  Transmission Date: 20221027
  Serious: Yes (Hospitalization, Other)
  Sender: FDA-Public Use
  Company Number: US-AMGEN-USACT2022139878

PATIENT
  Age: 87 Year
  Sex: Female
  Weight: 58.957 kg

DRUGS (16)
  1. ROMOSOZUMAB [Suspect]
     Active Substance: ROMOSOZUMAB
     Indication: Osteoporosis
     Dosage: 90 MILLIGRAM PER MILLILITRE
     Route: 058
     Dates: start: 20220225
  2. LEVOTHYROXINE [Concomitant]
     Active Substance: LEVOTHYROXINE
     Dosage: UNK
  3. DONEPEZIL HYDROCHLORIDE [Concomitant]
     Active Substance: DONEPEZIL HYDROCHLORIDE
  4. CALCIUM\MAGNESIUM\ZINC [Concomitant]
     Active Substance: CALCIUM\MAGNESIUM\ZINC
  5. VITAMIN B12 [Concomitant]
     Active Substance: CYANOCOBALAMIN
     Dosage: UNK
  6. MELATONIN [Concomitant]
     Active Substance: MELATONIN
  7. VITAMIN D3 [Concomitant]
     Active Substance: CHOLECALCIFEROL
  8. MYRBETRIQ [Concomitant]
     Active Substance: MIRABEGRON
  9. CALTRATE [Concomitant]
     Active Substance: CALCIUM CARBONATE
  10. COUGH NOS [Concomitant]
     Active Substance: DEXTROMETHORPHAN HYDROBROMIDE OR DEXTROMETHORPHAN HYDROBROMIDE\DOXYLAMINE SUCCINATE OR DEXTROMETHORP
     Dosage: UNK
     Route: 065
  11. HEART [Concomitant]
     Dosage: UNK
     Route: 065
  12. GARLIC [Concomitant]
     Active Substance: GARLIC
     Dosage: UNK
  13. CAPSICUM ANNUUM [Concomitant]
     Active Substance: CAPSICUM
     Dosage: UNK
  14. CRATAEGUS LAEVIGATA [Concomitant]
     Dosage: UNK
  15. FENNEL SEED [Concomitant]
     Active Substance: FENNEL SEED
     Dosage: UNK
  16. UBIDECARENONE [Concomitant]
     Active Substance: UBIDECARENONE
     Dosage: UNK

REACTIONS (5)
  - Respiratory failure [Unknown]
  - Colony stimulating factor therapy [Unknown]
  - Pleural effusion [Unknown]
  - Left ventricular failure [Not Recovered/Not Resolved]
  - Cough [Unknown]

NARRATIVE: CASE EVENT DATE: 20220723
